FAERS Safety Report 7980770-6 (Version None)
Quarter: 2011Q4

REPORT INFORMATION
  Report Type: 
  Country: None (occurrence: None)
  Receive Date: 20111214
  Receipt Date: 20111114
  Transmission Date: 20120403
  Serious: No
  Sender: FDA-Public Use
  Company Number: US-BAYER-2011-110473

PATIENT
  Age: 58 Year
  Sex: Female

DRUGS (9)
  1. LYRICA [Concomitant]
     Indication: FIBROMYALGIA
  2. ZESTRIL [Concomitant]
     Indication: HYPERTENSION
     Dosage: 5 MG, BID
  3. METFORMIN HCL [Concomitant]
     Indication: DIABETES MELLITUS
     Dosage: 500 MG, BID
  4. METRONIDAZOLE [Concomitant]
     Dosage: 0.75 %, UNK
     Dates: start: 20110816
  5. ACZONE [Concomitant]
     Dosage: UNK
     Dates: start: 20110816
  6. FINACEA [Suspect]
     Dosage: 15 %, UNK
     Dates: start: 20110816
  7. ORACEA [Concomitant]
     Indication: ROSACEA
     Dosage: 40 MG, DAILY
     Dates: start: 20110816, end: 20110101
  8. ORACEA [Concomitant]
     Dosage: 40 MG, DAILY
     Dates: start: 20110101
  9. TOPAMAX [Concomitant]
     Indication: FIBROMYALGIA
     Dosage: 100 MG, BID

REACTIONS (2)
  - NAUSEA [None]
  - VOMITING [None]
